FAERS Safety Report 12383176 (Version 1)
Quarter: 2016Q2

REPORT INFORMATION
  Report Type: Spontaneous
  Country: US (occurrence: US)
  Receive Date: 20160518
  Receipt Date: 20160518
  Transmission Date: 20160815
  Serious: No
  Sender: FDA-Public Use
  Company Number: US-PFIZER INC-2016236620

PATIENT
  Sex: Female

DRUGS (1)
  1. CLINDAMYCIN HCL [Suspect]
     Active Substance: CLINDAMYCIN HYDROCHLORIDE
     Dosage: UNK

REACTIONS (6)
  - Vomiting [Unknown]
  - Drug hypersensitivity [Unknown]
  - Dizziness [Unknown]
  - Headache [Unknown]
  - Irritability [Unknown]
  - Nausea [Unknown]
